FAERS Safety Report 13538626 (Version 9)
Quarter: 2019Q1

REPORT INFORMATION
  Report Type: Spontaneous
  Country: AU (occurrence: AU)
  Receive Date: 20170512
  Receipt Date: 20190103
  Transmission Date: 20190417
  Serious: Yes (Death, Hospitalization, Other)
  Sender: FDA-Public Use
  Company Number: AU-BIOGEN-2017BI00391692

PATIENT
  Age: 24 Year
  Sex: Female

DRUGS (4)
  1. VENTOLIN [Concomitant]
     Active Substance: ALBUTEROL SULFATE
     Indication: PRODUCT USED FOR UNKNOWN INDICATION
     Route: 065
  2. SYMBICORT [Concomitant]
     Active Substance: BUDESONIDE\FORMOTEROL FUMARATE DIHYDRATE
     Indication: PRODUCT USED FOR UNKNOWN INDICATION
     Route: 065
  3. ZINBRYTA [Suspect]
     Active Substance: DACLIZUMAB
     Indication: RELAPSING-REMITTING MULTIPLE SCLEROSIS
     Route: 058
     Dates: start: 20170216
  4. EVELYN PILL [Concomitant]
     Indication: PRODUCT USED FOR UNKNOWN INDICATION
     Route: 065

REACTIONS (19)
  - Motor dysfunction [Recovered/Resolved]
  - Blood magnesium decreased [Not Recovered/Not Resolved]
  - Agranulocytosis [Recovered/Resolved]
  - Vomiting [Unknown]
  - Tachycardia [Recovered/Resolved]
  - Nausea [Unknown]
  - Blood potassium decreased [Not Recovered/Not Resolved]
  - Oesophageal ulcer [Not Recovered/Not Resolved]
  - Lower respiratory tract infection [Not Recovered/Not Resolved]
  - Infection [Unknown]
  - Immunodeficiency common variable [Fatal]
  - Neutropenia [Not Recovered/Not Resolved]
  - T-lymphocyte count decreased [Unknown]
  - Malaise [Unknown]
  - Vitamin B12 deficiency [Unknown]
  - Hypogammaglobulinaemia [Unknown]
  - Enteritis [Not Recovered/Not Resolved]
  - B-lymphocyte count decreased [Unknown]
  - Pyrexia [Recovered/Resolved]

NARRATIVE: CASE EVENT DATE: 2017
